FAERS Safety Report 18055344 (Version 1)
Quarter: 2020Q3

REPORT INFORMATION
  Report Type: Spontaneous
  Country: US (occurrence: US)
  Receive Date: 20200722
  Receipt Date: 20200722
  Transmission Date: 20201103
  Serious: Yes (Hospitalization, Other)
  Sender: FDA-Public Use
  Company Number: US-GILEAD-2020-0484353

PATIENT
  Age: 52 Year
  Sex: Male

DRUGS (50)
  1. VITAMIN D3 [Concomitant]
     Active Substance: CHOLECALCIFEROL
  2. INTELENCE [Concomitant]
     Active Substance: ETRAVIRINE
  3. TYBOST [Concomitant]
     Active Substance: COBICISTAT
  4. TRAZODONE [Concomitant]
     Active Substance: TRAZODONE HYDROCHLORIDE
  5. AZITHROMYCIN ANHYDROUS. [Concomitant]
     Active Substance: AZITHROMYCIN ANHYDROUS
  6. OMEPRAZOLE. [Concomitant]
     Active Substance: OMEPRAZOLE
  7. EGRIFTA [Concomitant]
     Active Substance: TESAMORELIN ACETATE
  8. EMTRIVA [Concomitant]
     Active Substance: EMTRICITABINE
  9. PIFELTRO [Concomitant]
     Active Substance: DORAVIRINE
  10. NAPROXEN. [Concomitant]
     Active Substance: NAPROXEN
  11. PROVENTIL [Concomitant]
     Active Substance: ALBUTEROL
  12. LOSARTAN. [Concomitant]
     Active Substance: LOSARTAN
  13. NITROSTAT [Concomitant]
     Active Substance: NITROGLYCERIN
  14. TRUVADA [Suspect]
     Active Substance: EMTRICITABINE\TENOFOVIR DISOPROXIL FUMARATE
     Indication: HIV INFECTION
     Dosage: UNK
     Route: 048
     Dates: start: 2004, end: 201111
  15. ATORVASTATIN [Concomitant]
     Active Substance: ATORVASTATIN
  16. HYDROCODONE [Concomitant]
     Active Substance: HYDROCODONE
  17. TIZANIDINE. [Concomitant]
     Active Substance: TIZANIDINE
  18. PROCHLORPERAZINE. [Concomitant]
     Active Substance: PROCHLORPERAZINE
  19. PREDNISONE. [Concomitant]
     Active Substance: PREDNISONE
  20. PHOSLO [Concomitant]
     Active Substance: CALCIUM ACETATE
  21. NORVIR [Concomitant]
     Active Substance: RITONAVIR
  22. PREZCOBIX [Concomitant]
     Active Substance: COBICISTAT\DARUNAVIR ETHANOLATE
  23. PROMETHAZINE [Concomitant]
     Active Substance: PROMETHAZINE HYDROCHLORIDE
  24. VIAGRA [SILDENAFIL] [Concomitant]
  25. SUMATRIPTAN. [Concomitant]
     Active Substance: SUMATRIPTAN
  26. PENICILLIN VK [Concomitant]
     Active Substance: PENICILLIN V POTASSIUM
  27. TERBINAFINE. [Concomitant]
     Active Substance: TERBINAFINE
  28. ZOLPIDEM [Concomitant]
     Active Substance: ZOLPIDEM TARTRATE
  29. ESCITALOPRAM [Concomitant]
     Active Substance: ESCITALOPRAM OXALATE
  30. DIAZEPAM. [Concomitant]
     Active Substance: DIAZEPAM
  31. AMOXICILLIN. [Concomitant]
     Active Substance: AMOXICILLIN
  32. LYRICA [Concomitant]
     Active Substance: PREGABALIN
  33. ECOTRIN [Concomitant]
     Active Substance: ASPIRIN
  34. CYCLOBENZAPRINE. [Concomitant]
     Active Substance: CYCLOBENZAPRINE
  35. RIZATRIPTAN. [Concomitant]
     Active Substance: RIZATRIPTAN
  36. LISINOPRIL. [Concomitant]
     Active Substance: LISINOPRIL
  37. FROVA [Concomitant]
     Active Substance: FROVATRIPTAN SUCCINATE
  38. TIVICAY [Concomitant]
     Active Substance: DOLUTEGRAVIR SODIUM
  39. ONDANSETRON [Concomitant]
     Active Substance: ONDANSETRON
  40. BENZONATATE. [Concomitant]
     Active Substance: BENZONATATE
  41. ISENTRESS [Concomitant]
     Active Substance: RALTEGRAVIR POTASSIUM
  42. KALETRA [Concomitant]
     Active Substance: LOPINAVIR\RITONAVIR
  43. PREZISTA [Concomitant]
     Active Substance: DARUNAVIR ETHANOLATE
  44. AMBIEN [Concomitant]
     Active Substance: ZOLPIDEM TARTRATE
  45. OXYCODONE [Concomitant]
     Active Substance: OXYCODONE
  46. CEPHALEXIN [CEFALEXIN] [Concomitant]
     Active Substance: CEPHALEXIN
  47. GABAPENTIN. [Concomitant]
     Active Substance: GABAPENTIN
  48. BELSOMRA [Concomitant]
     Active Substance: SUVOREXANT
  49. LOSARTAN/HCTZ [Concomitant]
     Active Substance: HYDROCHLOROTHIAZIDE\LOSARTAN
  50. DEXAMETHASONE. [Concomitant]
     Active Substance: DEXAMETHASONE

REACTIONS (4)
  - Renal failure [Not Recovered/Not Resolved]
  - Pain [Not Recovered/Not Resolved]
  - Anxiety [Not Recovered/Not Resolved]
  - Chronic kidney disease [Not Recovered/Not Resolved]

NARRATIVE: CASE EVENT DATE: 2011
